FAERS Safety Report 4701731-6 (Version None)
Quarter: 2005Q2

REPORT INFORMATION
  Report Type: 
  Country: None (occurrence: None)
  Receive Date: 20050627
  Receipt Date: 20050614
  Transmission Date: 20051028
  Serious: Yes (Hospitalization)
  Sender: FDA-Public Use
  Company Number: 430005E05GBR

PATIENT
  Age: 47 Year

DRUGS (4)
  1. NOVANTRONE [Suspect]
     Indication: B-CELL LYMPHOMA
     Dosage: 28.6 MG, ONCE, INTRAVENOUS (NOT OTHERWISE SPECIFIED)
     Route: 042
     Dates: start: 20050301
  2. CHLORAMBUCIL [Suspect]
     Indication: B-CELL LYMPHOMA
     Dosage: ORAL
     Route: 048
     Dates: start: 20050330, end: 20050409
  3. DEXAMETHASONE [Suspect]
     Indication: B-CELL LYMPHOMA
     Dosage: ORAL
     Route: 048
     Dates: end: 20050404
  4. BACTRIM [Concomitant]
     Dosage: 480MG      1  IN 1 DAY

REACTIONS (3)
  - DIARRHOEA [None]
  - NEUTROPENIC SEPSIS [None]
  - TACHYCARDIA [None]
